FAERS Safety Report 15236844 (Version 2)
Quarter: 2018Q3

REPORT INFORMATION
  Report Type: Spontaneous
  Country: US (occurrence: US)
  Receive Date: 20180803
  Receipt Date: 20180803
  Transmission Date: 20181010
  Serious: No
  Sender: FDA-Public Use
  Company Number: US-SA-2018SA158708

PATIENT
  Age: 61 Year
  Sex: Male

DRUGS (2)
  1. TOUJEO [Suspect]
     Active Substance: INSULIN GLARGINE
     Indication: TYPE 2 DIABETES MELLITUS
     Dosage: 20?22 UNITS PER DAY
     Route: 065
  2. TOUJEO [Suspect]
     Active Substance: INSULIN GLARGINE
     Dosage: 45 U, AT NIGHT
     Route: 065

REACTIONS (6)
  - Crying [Unknown]
  - Skin abrasion [Unknown]
  - Nightmare [Unknown]
  - Hyperhidrosis [Unknown]
  - Screaming [Unknown]
  - Pruritus [Unknown]
